FAERS Safety Report 8569057-0 (Version None)
Quarter: 2012Q3

REPORT INFORMATION
  Report Type: 
  Country: None (occurrence: None)
  Receive Date: 20120803
  Receipt Date: 20120420
  Transmission Date: 20120928
  Serious: No
  Sender: FDA-Public Use
  Company Number: US-ABBOTT-12P-163-0928171-00

PATIENT
  Sex: Female

DRUGS (2)
  1. ASPIRIN [Concomitant]
     Indication: PRODUCT USED FOR UNKNOWN INDICATION
  2. NIASPAN [Suspect]
     Indication: PRODUCT USED FOR UNKNOWN INDICATION

REACTIONS (7)
  - INFLUENZA [None]
  - TONGUE DISCOLOURATION [None]
  - SKIN BURNING SENSATION [None]
  - SWOLLEN TONGUE [None]
  - FEELING HOT [None]
  - FLUSHING [None]
  - WRONG TECHNIQUE IN DRUG USAGE PROCESS [None]
